FAERS Safety Report 7386572-6 (Version None)
Quarter: 2011Q1

REPORT INFORMATION
  Report Type: 
  Country: None (occurrence: None)
  Receive Date: 20110329
  Receipt Date: 20110329
  Transmission Date: 20110831
  Serious: Yes (Other)
  Sender: FDA-Public Use
  Company Number: None

PATIENT
  Age: 12 Year
  Sex: Male
  Weight: 45.3597 kg

DRUGS (4)
  1. CEFDINIR [Suspect]
     Indication: EAR INFECTION
     Dosage: 1 CAP TWICE/DAILY PO
     Route: 048
     Dates: start: 20110319, end: 20110329
  2. CEFDINIR [Suspect]
     Indication: PHARYNGITIS STREPTOCOCCAL
     Dosage: 1 CAP TWICE/DAILY PO
     Route: 048
     Dates: start: 20110319, end: 20110329
  3. CEFDINIR [Suspect]
     Indication: EAR INFECTION
     Dosage: 1 CAP TWICE/DAILY PO
     Route: 048
     Dates: start: 20100203, end: 20100213
  4. CEFDINIR [Suspect]
     Indication: PHARYNGITIS STREPTOCOCCAL
     Dosage: 1 CAP TWICE/DAILY PO
     Route: 048
     Dates: start: 20100203, end: 20100213

REACTIONS (3)
  - DIARRHOEA [None]
  - NAUSEA [None]
  - VOMITING [None]
